FAERS Safety Report 12790988 (Version 3)
Quarter: 2016Q4

REPORT INFORMATION
  Report Type: Spontaneous
  Country: US (occurrence: US)
  Receive Date: 20160929
  Receipt Date: 20161018
  Transmission Date: 20170207
  Serious: No
  Sender: FDA-Public Use
  Company Number: US-PFIZER INC-2016449420

PATIENT
  Sex: Male

DRUGS (2)
  1. SULFAMETHOXAZOLE-TRIMETHOPRIM (SMZ) [Suspect]
     Active Substance: SULFAMETHOXAZOLE\TRIMETHOPRIM
     Dosage: 800 MG/160 MG
  2. DILANTIN [Concomitant]
     Active Substance: PHENYTOIN
     Dosage: 100 MG, 2X/DAY
     Dates: start: 1948

REACTIONS (10)
  - Pyrexia [Recovered/Resolved]
  - Muscle disorder [Recovered/Resolved]
  - Myalgia [Unknown]
  - Tremor [Unknown]
  - Muscular weakness [Unknown]
  - Bladder disorder [Unknown]
  - Nausea [Unknown]
  - Arthralgia [Recovered/Resolved]
  - Balance disorder [Unknown]
  - Dysstasia [Unknown]
